FAERS Safety Report 4816934-X (Version None)
Quarter: 2005Q4

REPORT INFORMATION
  Report Type: 
  Country: None (occurrence: None)
  Receive Date: 20051101
  Receipt Date: 20050516
  Transmission Date: 20060501
  Serious: Yes (Hospitalization)
  Sender: FDA-Public Use
  Company Number: US-MERCK-0505USA01957

PATIENT
  Age: 65 Year
  Sex: Male
  Weight: 107 kg

DRUGS (26)
  1. VIOXX [Suspect]
     Indication: ARTHRITIS
     Route: 048
     Dates: start: 20010402, end: 20040901
  2. ALTACE [Concomitant]
     Indication: CARDIAC DISORDER
     Route: 065
     Dates: start: 20000601, end: 20030812
  3. NORVASC [Concomitant]
     Indication: CARDIAC DISORDER
     Route: 065
     Dates: start: 20010121
  4. NORVASC [Concomitant]
     Indication: HYPERTENSION
     Route: 065
     Dates: start: 20010121
  5. FUROSEMIDE [Concomitant]
     Indication: OEDEMA PERIPHERAL
     Route: 065
     Dates: start: 20000504
  6. ASPIRIN [Concomitant]
     Indication: PROPHYLAXIS
     Route: 065
     Dates: start: 19960101
  7. CEPHALEXIN [Concomitant]
     Route: 065
  8. FE-TINIC [Concomitant]
     Route: 065
  9. TORSEMIDE [Concomitant]
     Route: 065
  10. KLOR-CON [Concomitant]
     Route: 065
  11. CIPRO [Concomitant]
     Route: 065
  12. DITROPAN XL [Concomitant]
     Route: 065
  13. LISINOPRIL [Concomitant]
     Route: 065
  14. TERAZOSIN HYDROCHLORIDE [Concomitant]
     Route: 065
  15. POTASSIUM CHLORIDE [Concomitant]
     Route: 065
  16. TOPROL-XL [Concomitant]
     Route: 065
  17. METOPROLOL [Concomitant]
     Route: 065
  18. FERROUS SULFATE [Concomitant]
     Route: 065
  19. K-DUR 10 [Concomitant]
     Route: 065
  20. IMIPRAMINE HYDROCHLORIDE [Concomitant]
     Route: 065
  21. CIPROFLOXACIN [Concomitant]
     Route: 065
  22. FLOMAX [Concomitant]
     Route: 065
  23. TRIAMCINOLONE [Concomitant]
     Route: 065
  24. DICLOFENAC [Concomitant]
     Route: 065
  25. CATAPRES-TTS-1 [Concomitant]
     Route: 065
  26. VICODIN [Concomitant]
     Route: 065

REACTIONS (6)
  - ARTHROPATHY [None]
  - CARDIAC FAILURE CONGESTIVE [None]
  - COLON CANCER [None]
  - COUGH [None]
  - MYOCARDIAL INFARCTION [None]
  - PROSTATE CANCER [None]
